FAERS Safety Report 4712657-6 (Version None)
Quarter: 2005Q3

REPORT INFORMATION
  Report Type: 
  Country: None (occurrence: None)
  Receive Date: 20050706
  Receipt Date: 20050209
  Transmission Date: 20060218
  Serious: Yes (Hospitalization)
  Sender: FDA-Public Use
  Company Number: US-2004-031309

PATIENT
  Age: 63 Year
  Sex: Female
  Weight: 59.6 kg

DRUGS (4)
  1. CAMPATH [Suspect]
     Indication: CHRONIC LYMPHOCYTIC LEUKAEMIA
     Dosage: 3/10/30 MG/DAY, SUBCUTANEOUS
     Route: 058
     Dates: start: 20040209, end: 20040213
  2. FLUDARA [Concomitant]
  3. ATENOLOL [Concomitant]
  4. CORTICOSTEROIDS [Concomitant]

REACTIONS (3)
  - DYSPNOEA [None]
  - GRAND MAL CONVULSION [None]
  - PLEURITIC PAIN [None]
